FAERS Safety Report 9714937 (Version 2)
Quarter: 2014Q1

REPORT INFORMATION
  Report Type: Spontaneous
  Country: US (occurrence: US)
  Receive Date: 20131126
  Receipt Date: 20140106
  Transmission Date: 20141002
  Serious: No
  Sender: FDA-Public Use
  Company Number: US-GILEAD-2013-0088676

PATIENT
  Age: 66 Year
  Sex: Male

DRUGS (4)
  1. LETAIRIS [Suspect]
     Indication: PRODUCT USED FOR UNKNOWN INDICATION
     Dosage: 5 MG, QD
     Route: 048
     Dates: start: 20130731
  2. ALDACTONE                          /00006201/ [Concomitant]
  3. ASA [Concomitant]
  4. LASIX                              /00032601/ [Concomitant]

REACTIONS (3)
  - Abdominal pain [Unknown]
  - Local swelling [Unknown]
  - Dyspnoea [Unknown]
